FAERS Safety Report 4626472-5 (Version None)
Quarter: 2005Q1

REPORT INFORMATION
  Report Type: 
  Country: None (occurrence: None)
  Receive Date: 20050330
  Receipt Date: 20050316
  Transmission Date: 20050727
  Serious: Yes (Other)
  Sender: FDA-Public Use
  Company Number: USA030844432

PATIENT
  Age: 87 Year
  Sex: Female
  Weight: 60 kg

DRUGS (4)
  1. FORTEO [Suspect]
     Indication: OSTEOARTHRITIS
     Dates: start: 20030731, end: 20050316
  2. FORTEO [Suspect]
     Indication: OSTEOPOROSIS
     Dates: start: 20030731, end: 20050316
  3. NORVASC [Concomitant]
  4. VITAMIN [Concomitant]

REACTIONS (9)
  - EAR DISCOMFORT [None]
  - ECCHYMOSIS [None]
  - FLUSHING [None]
  - HEPATIC NEOPLASM MALIGNANT [None]
  - INJECTION SITE DISCOLOURATION [None]
  - INJECTION SITE HAEMORRHAGE [None]
  - INJECTION SITE INDURATION [None]
  - PHARMACEUTICAL PRODUCT COMPLAINT [None]
  - REFUSAL OF TREATMENT BY PATIENT [None]
